FAERS Safety Report 23149681 (Version 1)
Quarter: 2023Q4

REPORT INFORMATION
  Report Type: Spontaneous
  Country: FR (occurrence: FR)
  Receive Date: 20231106
  Receipt Date: 20231106
  Transmission Date: 20240110
  Serious: Yes (Hospitalization, Other)
  Sender: FDA-Public Use
  Company Number: None

PATIENT
  Age: 18 Year
  Sex: Male
  Weight: 62 kg

DRUGS (11)
  1. DOXORUBICIN HYDROCHLORIDE [Suspect]
     Active Substance: DOXORUBICIN HYDROCHLORIDE
     Indication: B-cell lymphoma
     Dosage: DOSAGE NOT SPECIFIED
     Route: 042
     Dates: start: 20230926
  2. DOXORUBICIN HYDROCHLORIDE [Suspect]
     Active Substance: DOXORUBICIN HYDROCHLORIDE
     Dosage: DOSAGE NOT SPECIFIED
     Route: 042
     Dates: start: 20231012
  3. VINCRISTINE SULFATE [Suspect]
     Active Substance: VINCRISTINE SULFATE
     Indication: B-cell lymphoma
     Dosage: DOSAGE NOT SPECIFIED
     Route: 042
     Dates: start: 20230926
  4. VINCRISTINE SULFATE [Suspect]
     Active Substance: VINCRISTINE SULFATE
     Dosage: DOSAGE NOT SPECIFIED
     Route: 042
     Dates: start: 20231012
  5. RITUXIMAB [Suspect]
     Active Substance: RITUXIMAB
     Indication: B-cell lymphoma
     Dosage: DOSAGE NOT SPECIFIED
     Route: 042
     Dates: start: 20230926
  6. RITUXIMAB [Suspect]
     Active Substance: RITUXIMAB
     Dosage: DOSAGE NOT SPECIFIED
     Route: 042
     Dates: start: 20231012
  7. PREDNISONE [Suspect]
     Active Substance: PREDNISONE
     Indication: B-cell lymphoma
     Dosage: DOSAGE NOT SPECIFIED
     Route: 048
     Dates: start: 20230926
  8. PREDNISONE [Suspect]
     Active Substance: PREDNISONE
     Dosage: DOSAGE NOT SPECIFIED
     Route: 048
     Dates: start: 20231012
  9. BACTRIM [Suspect]
     Active Substance: SULFAMETHOXAZOLE\TRIMETHOPRIM
     Indication: Prophylaxis
     Dosage: 1 DF, ALTERNATE DAY
     Route: 048
     Dates: start: 20230926, end: 20231013
  10. CYCLOPHOSPHAMIDE [Suspect]
     Active Substance: CYCLOPHOSPHAMIDE
     Indication: B-cell lymphoma
     Dosage: DOSAGE NOT SPECIFIED
     Route: 042
     Dates: start: 20230926
  11. CYCLOPHOSPHAMIDE [Suspect]
     Active Substance: CYCLOPHOSPHAMIDE
     Dosage: DOSAGE NOT SPECIFIED
     Route: 042
     Dates: start: 20231012

REACTIONS (1)
  - Pancreatitis acute [Recovered/Resolved]

NARRATIVE: CASE EVENT DATE: 20231013
